FAERS Safety Report 5597815-3 (Version None)
Quarter: 2007Q4

REPORT INFORMATION
  Report Type: 
  Country: None (occurrence: None)
  Receive Date: 20071221
  Receipt Date: 20070731
  Transmission Date: 20080405
  Serious: Yes (Other)
  Sender: FDA-Public Use
  Company Number: US200708000533

PATIENT
  Sex: Female

DRUGS (3)
  1. HUMALOG [Suspect]
  2. LEVEMIR (INSULIN DETEMIR) [Concomitant]
  3. NOVOLIN N [Concomitant]

REACTIONS (3)
  - BLOOD GLUCOSE DECREASED [None]
  - HYPOGLYCAEMIA UNAWARENESS [None]
  - LOSS OF CONSCIOUSNESS [None]
